FAERS Safety Report 6905189-8 (Version None)
Quarter: 2010Q3

REPORT INFORMATION
  Report Type: 
  Country: None (occurrence: None)
  Receive Date: 20100804
  Receipt Date: 20100728
  Transmission Date: 20110219
  Serious: Yes (Hospitalization, Other)
  Sender: FDA-Public Use
  Company Number: US-JNJFOC-20100305592

PATIENT
  Sex: Female

DRUGS (3)
  1. LEVAQUIN [Suspect]
     Indication: CHRONIC OBSTRUCTIVE PULMONARY DISEASE
     Route: 048
     Dates: start: 20081101
  2. LEVAQUIN [Suspect]
     Indication: BRONCHITIS
     Route: 048
     Dates: start: 20081101
  3. LEVAQUIN [Suspect]
     Route: 042

REACTIONS (4)
  - JOINT INJURY [None]
  - POST-TRAUMATIC PAIN [None]
  - ROTATOR CUFF SYNDROME [None]
  - TENDON RUPTURE [None]
